FAERS Safety Report 5090774-1 (Version None)
Quarter: 2006Q3

REPORT INFORMATION
  Report Type: 
  Country: None (occurrence: None)
  Receive Date: 20060823
  Receipt Date: 20060814
  Transmission Date: 20061208
  Serious: Yes (Hospitalization)
  Sender: FDA-Public Use
  Company Number: 20063150

PATIENT
  Age: 80 Year
  Sex: Male

DRUGS (1)
  1. LIORESAL [Suspect]
     Indication: MUSCLE SPASTICITY
     Dosage: 900 MCG, DAILY, INTRATHECAL
     Route: 037

REACTIONS (4)
  - COMA [None]
  - DRUG WITHDRAWAL SYNDROME [None]
  - OVERDOSE [None]
  - RESPIRATORY DEPRESSION [None]
